FAERS Safety Report 23519983 (Version 1)
Quarter: 2024Q1

REPORT INFORMATION
  Report Type: Spontaneous
  Country: US (occurrence: US)
  Receive Date: 20240214
  Receipt Date: 20240214
  Transmission Date: 20240410
  Serious: Yes (Hospitalization, Other)
  Sender: FDA-Public Use
  Company Number: US-JAZZ PHARMACEUTICALS-2024-US-002356

PATIENT
  Age: 6 Month
  Sex: Male

DRUGS (2)
  1. ASPARAGINASE [Suspect]
     Active Substance: ASPARAGINASE
     Indication: Acute lymphocytic leukaemia
     Dosage: 25 MILLIGRAM/SQ. METER ON DAY 2 AND 9
  2. CYTARABINE [Concomitant]
     Active Substance: CYTARABINE
     Indication: Acute lymphocytic leukaemia
     Dosage: DAYS 1, 2, 8, AND 9

REACTIONS (5)
  - Hypoglycaemia [Unknown]
  - Hyperinsulinism [Unknown]
  - Hypophagia [Unknown]
  - Diarrhoea [Unknown]
  - Vomiting [Unknown]
